FAERS Safety Report 4283865-6 (Version None)
Quarter: 2004Q1

REPORT INFORMATION
  Report Type: 
  Country: None (occurrence: None)
  Receive Date: 20040115
  Receipt Date: 20030929
  Transmission Date: 20041129
  Serious: Yes (Death, Hospitalization)
  Sender: FDA-Public Use
  Company Number: US-JNJFOC-20030600136

PATIENT
  Age: 68 Year
  Sex: Male

DRUGS (5)
  1. DOXIL [Suspect]
     Indication: MULTIPLE MYELOMA
     Dosage: 80 MG, INTRAVENOUS
     Route: 042
     Dates: start: 20030501, end: 20030501
  2. NEULASTA (ALL OTHER THERAPEUTIC PRODUCTS) [Concomitant]
  3. VINCRISTINE [Concomitant]
  4. ZOMETA [Concomitant]
  5. DECADRON [Concomitant]

REACTIONS (2)
  - DISEASE PROGRESSION [None]
  - NEUTROPENIA [None]
